FAERS Safety Report 15415528 (Version 5)
Quarter: 2019Q1

REPORT INFORMATION
  Report Type: Spontaneous
  Country: US (occurrence: US)
  Receive Date: 20180922
  Receipt Date: 20190204
  Transmission Date: 20190417
  Serious: Yes (Other)
  Sender: FDA-Public Use
  Company Number: US-JNJFOC-20180908919

PATIENT
  Age: 74 Year
  Sex: Male

DRUGS (5)
  1. AMLODIPINE BESYLATE. [Concomitant]
     Active Substance: AMLODIPINE BESYLATE
     Route: 065
  2. PRAVASTATIN SODIUM. [Concomitant]
     Active Substance: PRAVASTATIN SODIUM
     Route: 065
  3. OMEPRAZOLE. [Concomitant]
     Active Substance: OMEPRAZOLE
     Route: 065
  4. ZYTIGA [Suspect]
     Active Substance: ABIRATERONE ACETATE
     Indication: PROSTATE CANCER
     Dosage: 250 MG 4 TABLETS EVERYDAY
     Route: 048
     Dates: start: 201704, end: 201808
  5. GEMFIBROZIL. [Concomitant]
     Active Substance: GEMFIBROZIL
     Route: 065
     Dates: end: 201810

REACTIONS (12)
  - Drug ineffective [Unknown]
  - Prostatic specific antigen increased [Recovered/Resolved]
  - Swelling face [Recovered/Resolved]
  - Joint swelling [Recovered/Resolved]
  - Oedema peripheral [Recovered/Resolved]
  - Cough [Recovered/Resolved]
  - Blood calcium increased [Recovered/Resolved]
  - Asthenia [Recovered/Resolved]
  - Feeling of body temperature change [Recovered/Resolved]
  - Arthropathy [Not Recovered/Not Resolved]
  - Renal impairment [Recovered/Resolved]
  - Hot flush [Recovered/Resolved]

NARRATIVE: CASE EVENT DATE: 201705
